FAERS Safety Report 8167362-3 (Version None)
Quarter: 2012Q1

REPORT INFORMATION
  Report Type: 
  Country: None (occurrence: None)
  Receive Date: 20120227
  Receipt Date: 20120217
  Transmission Date: 20120608
  Serious: No
  Sender: FDA-Public Use
  Company Number: US-NAPPMUNDI-USA-2012-0082259

PATIENT
  Sex: Female

DRUGS (3)
  1. TYLENOL (CAPLET) [Concomitant]
     Indication: BREAKTHROUGH PAIN
  2. OXYCONTIN [Suspect]
     Indication: PAIN
     Dosage: 320 MG, BID
     Route: 048
  3. ADVIL PM                           /05810501/ [Concomitant]
     Indication: BREAKTHROUGH PAIN

REACTIONS (1)
  - PAIN [None]
